FAERS Safety Report 5312108-7 (Version None)
Quarter: 2007Q2

REPORT INFORMATION
  Report Type: 
  Country: None (occurrence: None)
  Receive Date: 20070430
  Receipt Date: 20060831
  Transmission Date: 20071010
  Serious: No
  Sender: FDA-Public Use
  Company Number: 2006UW17291

PATIENT
  Age: 77 Year
  Sex: Female
  Weight: 131.5 kg

DRUGS (6)
  1. NEXIUM [Suspect]
     Indication: GASTROOESOPHAGEAL REFLUX DISEASE
     Route: 048
  2. PRILOSEC [Concomitant]
  3. TOPROL-XL [Concomitant]
  4. HYDROCODONE [Concomitant]
  5. HYDROXYCHLOROQUINE SULFATE [Concomitant]
  6. LOVASTATIN [Concomitant]

REACTIONS (1)
  - FAECES DISCOLOURED [None]
